FAERS Safety Report 7569804-0 (Version None)
Quarter: 2011Q2

REPORT INFORMATION
  Report Type: 
  Country: None (occurrence: None)
  Receive Date: 20110621
  Receipt Date: 20110621
  Transmission Date: 20111010
  Serious: Yes (Hospitalization, Other)
  Sender: FDA-Public Use
  Company Number: None

PATIENT
  Sex: Female
  Weight: 68.0396 kg

DRUGS (2)
  1. DORZOLAMIDE HYDROCHLORIDE [Suspect]
     Indication: GLAUCOMA
     Dosage: EYE GTT OU. TID 3X DAILY EYE GTT
     Dates: start: 20100701, end: 20110301
  2. AZOPT [Suspect]
     Indication: GLAUCOMA
     Dosage: EYE GTT OU TID 3X DAILY EYE GTT
     Dates: start: 20100501

REACTIONS (8)
  - ASTHENIA [None]
  - DIZZINESS [None]
  - HEART RATE DECREASED [None]
  - DRY MOUTH [None]
  - ARRHYTHMIA [None]
  - CARDIAC DISORDER [None]
  - DYSPHONIA [None]
  - PRODUCT SUBSTITUTION ISSUE [None]
